FAERS Safety Report 9318976 (Version 3)
Quarter: 2013Q2

REPORT INFORMATION
  Report Type: Spontaneous
  Country: CN (occurrence: CN)
  Receive Date: 20130530
  Receipt Date: 20130606
  Transmission Date: 20140414
  Serious: Yes (Hospitalization, Other)
  Sender: FDA-Public Use
  Company Number: CN-ELI_LILLY_AND_COMPANY-CN201305007275

PATIENT
  Age: 28 Year
  Sex: Female

DRUGS (1)
  1. HUMULIN REGULAR [Suspect]
     Indication: GLUCOSE TOLERANCE IMPAIRED IN PREGNANCY
     Dosage: 11 U, TID
     Route: 058
     Dates: start: 201203

REACTIONS (6)
  - Benign pancreatic neoplasm [Recovered/Resolved]
  - Diarrhoea [Recovered/Resolved]
  - Dyspepsia [Recovered/Resolved]
  - Dizziness [Recovered/Resolved]
  - Maternal exposure during pregnancy [Recovered/Resolved]
  - Alanine aminotransferase increased [Recovered/Resolved]
